FAERS Safety Report 10736634 (Version 1)
Quarter: 2015Q1

REPORT INFORMATION
  Report Type: Spontaneous
  Country: US (occurrence: None)
  Receive Date: 20150123
  Receipt Date: 20150123
  Transmission Date: 20150721
  Serious: Yes (Hospitalization)
  Sender: FDA-Public Use
  Company Number: None

PATIENT
  Age: 15 Year
  Sex: Male
  Weight: 67 kg

DRUGS (5)
  1. METHOREXATE [Suspect]
     Active Substance: METHOTREXATE SODIUM
     Dates: end: 20150109
  2. DEXAMETHASONE. [Suspect]
     Active Substance: DEXAMETHASONE
     Dates: end: 20141219
  3. MERCAPTOPURINE. [Suspect]
     Active Substance: MERCAPTOPURINE
     Dates: end: 20150115
  4. CYCLOPHOSPHAMIDE. [Suspect]
     Active Substance: CYCLOPHOSPHAMIDE
     Dates: end: 20150102
  5. VINCRISTINE SULFATE. [Suspect]
     Active Substance: VINCRISTINE SULFATE
     Dates: end: 20141219

REACTIONS (8)
  - Ataxia [None]
  - Flank pain [None]
  - Muscular weakness [None]
  - Nephrolithiasis [None]
  - Dysphemia [None]
  - Dysarthria [None]
  - Neurotoxicity [None]
  - Aphasia [None]

NARRATIVE: CASE EVENT DATE: 20150111
